FAERS Safety Report 10246064 (Version 1)
Quarter: 2014Q2

REPORT INFORMATION
  Report Type: Spontaneous
  Country: US (occurrence: None)
  Receive Date: 20140617
  Receipt Date: 20140617
  Transmission Date: 20141212
  Serious: No
  Sender: FDA-Public Use
  Company Number: None

PATIENT
  Age: 48 Year
  Sex: Female
  Weight: 68.04 kg

DRUGS (1)
  1. VENLAFAXINE [Suspect]
     Dosage: 2 PILLS ONCE DAILY TAKEN BY MOUTH
     Route: 048

REACTIONS (5)
  - Confusional state [None]
  - Drug withdrawal syndrome [None]
  - Paraesthesia [None]
  - Photophobia [None]
  - Impaired work ability [None]
